FAERS Safety Report 19460417 (Version 2)
Quarter: 2021Q3

REPORT INFORMATION
  Report Type: Spontaneous
  Country: US (occurrence: US)
  Receive Date: 20210625
  Receipt Date: 20210928
  Transmission Date: 20211014
  Serious: Yes (Other)
  Sender: FDA-Public Use
  Company Number: US-LUPIN PHARMACEUTICALS INC.-2021-10018

PATIENT
  Age: 69 Year
  Sex: Male

DRUGS (20)
  1. LORAZEPAM. [Suspect]
     Active Substance: LORAZEPAM
     Indication: RESTLESS LEGS SYNDROME
     Dosage: UNK
     Route: 065
  2. LAMOTRIGINE. [Concomitant]
     Active Substance: LAMOTRIGINE
     Indication: BIPOLAR DISORDER
     Dosage: 200 MICROGRAM, QD
     Route: 065
     Dates: end: 201802
  3. CARBIDOPA LEVODOPA [Concomitant]
     Active Substance: CARBIDOPA\LEVODOPA
     Dosage: 1 DOSAGE FORM, 12 HOURS
     Route: 065
     Dates: start: 201803, end: 202105
  4. PRAMIPEXOLE. [Concomitant]
     Active Substance: PRAMIPEXOLE
     Indication: BIPOLAR DISORDER
     Dosage: 375 MICROGRAM, QD (STOP DATE: JUL?2017)
     Route: 065
  5. GABAPENTIN. [Suspect]
     Active Substance: GABAPENTIN
     Indication: BIPOLAR DISORDER
     Dosage: 3200 MILLIGRAM, QD (BEDTIME) (STOP DATE: NOV?2016)
     Route: 065
  6. QUETIAPINE FUMARATE. [Suspect]
     Active Substance: QUETIAPINE FUMARATE
     Indication: BIPOLAR DISORDER
     Dosage: UNK (STOP DATE: JAN?2017)
     Route: 065
     Dates: start: 201612
  7. LAMOTRIGINE. [Concomitant]
     Active Substance: LAMOTRIGINE
     Dosage: 200 MICROGRAM, QD (PM)
     Route: 065
     Dates: start: 201803
  8. GABAPENTIN. [Suspect]
     Active Substance: GABAPENTIN
     Dosage: 1600 MILLIGRAM, QD (BEDTIME)
     Route: 065
     Dates: end: 201808
  9. TEMAZEPAM. [Suspect]
     Active Substance: TEMAZEPAM
     Indication: INSOMNIA
     Dosage: UNK, PRN (15 TO 30 MG AS NEEDED) (STOP DATE: NOV?2016)
     Route: 065
  10. OLANZAPINE. [Suspect]
     Active Substance: OLANZAPINE
     Indication: BIPOLAR DISORDER
     Dosage: UNK (STOP DATE: JAN?2017)
     Route: 065
     Dates: start: 201612
  11. ROPINIROLE. [Concomitant]
     Active Substance: ROPINIROLE
     Dosage: UNK (START DATE: JUL?2017)
     Route: 065
  12. CARBIDOPA LEVODOPA [Concomitant]
     Active Substance: CARBIDOPA\LEVODOPA
     Indication: BIPOLAR DISORDER
     Dosage: 1 DOSAGE FORM, 6 HOURS
     Route: 065
     Dates: start: 201806, end: 201903
  13. DIVALPROEX [Concomitant]
     Active Substance: DIVALPROEX SODIUM
     Dosage: 1000 MILLIGRAM, QD, AT BEDTIME
     Route: 065
     Dates: start: 201803
  14. LAMOTRIGINE. [Concomitant]
     Active Substance: LAMOTRIGINE
     Dosage: 150 MICROGRAM, QD (AM)
     Route: 065
     Dates: start: 201701
  15. LAMOTRIGINE. [Concomitant]
     Active Substance: LAMOTRIGINE
     Dosage: 100 MICROGRAM, QD (AM)
     Route: 065
     Dates: start: 201803
  16. ROPINIROLE. [Concomitant]
     Active Substance: ROPINIROLE
     Indication: BIPOLAR DISORDER
     Dosage: 6 MILLIGRAM, QD, BEDTIME (START DATE: JUL?2017)
     Route: 065
  17. ROPINIROLE. [Concomitant]
     Active Substance: ROPINIROLE
     Dosage: 0.5 MILLIGRAM, QD (START DATE: JUL?2017)
     Route: 065
  18. DIVALPROEX [Concomitant]
     Active Substance: DIVALPROEX SODIUM
     Indication: PRODUCT USED FOR UNKNOWN INDICATION
     Dosage: 1500 MILLIGRAM, QD, AT BEDTIME
     Route: 065
     Dates: start: 201701, end: 201802
  19. GABAPENTIN. [Suspect]
     Active Substance: GABAPENTIN
     Dosage: 800 MILLIGRAM, QD (MORNING)
     Route: 065
     Dates: end: 201808
  20. CODEINE [Concomitant]
     Active Substance: CODEINE
     Indication: PRODUCT USED FOR UNKNOWN INDICATION
     Dosage: UNK
     Route: 065

REACTIONS (7)
  - Off label use [Unknown]
  - Condition aggravated [Recovering/Resolving]
  - Oedema peripheral [Unknown]
  - Intentional product misuse [Unknown]
  - Restless legs syndrome [Recovering/Resolving]
  - Self-medication [Unknown]
  - Drug ineffective for unapproved indication [Unknown]

NARRATIVE: CASE EVENT DATE: 201701
